FAERS Safety Report 7018120-4 (Version None)
Quarter: 2010Q3

REPORT INFORMATION
  Report Type: 
  Country: None (occurrence: None)
  Receive Date: 20100928
  Receipt Date: 20100920
  Transmission Date: 20110219
  Serious: Yes (Hospitalization)
  Sender: FDA-Public Use
  Company Number: CH-NAPPMUNDI-DEU-2010-0006587

PATIENT

DRUGS (1)
  1. MORPHINE SULFATE CR CAPSULE DAILY [Suspect]
     Indication: DRUG DEPENDENCE
     Dosage: 1200 MG, DAILY
     Dates: start: 20100407

REACTIONS (1)
  - GYNAECOMASTIA [None]
